FAERS Safety Report 4467468-6 (Version None)
Quarter: 2004Q4

REPORT INFORMATION
  Report Type: 
  Country: None (occurrence: None)
  Receive Date: 20041006
  Receipt Date: 20041001
  Transmission Date: 20050328
  Serious: Yes (Hospitalization)
  Sender: FDA-Public Use
  Company Number: CA-MERCK-0410CAN00055

PATIENT
  Age: 88 Year
  Sex: Female

DRUGS (2)
  1. CLOPIDOGREL BISULFATE [Concomitant]
     Route: 065
  2. VIOXX [Suspect]
     Route: 065
     Dates: start: 20000801

REACTIONS (1)
  - CEREBROVASCULAR ACCIDENT [None]
